FAERS Safety Report 5079257-2 (Version None)
Quarter: 2006Q3

REPORT INFORMATION
  Report Type: 
  Country: None (occurrence: None)
  Receive Date: 20060720
  Receipt Date: 20050815
  Transmission Date: 20061208
  Serious: Yes (Hospitalization, Other)
  Sender: FDA-Public Use
  Company Number: 2005087794

PATIENT
  Age: 57 Year
  Sex: Female

DRUGS (5)
  1. CELEBREX [Suspect]
     Indication: RHEUMATOID ARTHRITIS
     Dosage: 400 MG (200 MG, 2 IN 1 D), UNKNOWN
     Dates: start: 20030124
  2. ARAVA [Concomitant]
  3. DARVOCET-N 100 [Concomitant]
  4. PREDNISONE TAB [Concomitant]
  5. FOSAMAX [Concomitant]

REACTIONS (3)
  - ERYTHEMA MULTIFORME [None]
  - PYREXIA [None]
  - RASH [None]
